FAERS Safety Report 4686091-1 (Version None)
Quarter: 2005Q2

REPORT INFORMATION
  Report Type: 
  Country: None (occurrence: None)
  Receive Date: 20050609
  Receipt Date: 19950407
  Transmission Date: 20051028
  Serious: Yes (Death, Life-Threatening)
  Sender: FDA-Public Use
  Company Number: 199500960HAG

PATIENT
  Age: 83 Year
  Sex: Male
  Weight: 79 kg

DRUGS (5)
  1. LASIX [Suspect]
     Indication: CARDIAC FAILURE CONGESTIVE
     Route: 048
     Dates: start: 19891001
  2. AMIODARONE HYDROCHLORIDE [Suspect]
     Indication: LEFT VENTRICULAR FAILURE
     Route: 048
     Dates: start: 19891001, end: 19891107
  3. CAPOTEN [Suspect]
     Indication: CARDIAC FAILURE CONGESTIVE
     Route: 048
     Dates: start: 19891001
  4. SOLPRIN [Suspect]
     Indication: MYOCARDIAL ISCHAEMIA
     Route: 048
     Dates: start: 19891001
  5. NITRADISC [Suspect]
     Indication: MYOCARDIAL ISCHAEMIA
     Route: 048
     Dates: start: 19891001

REACTIONS (1)
  - RESPIRATORY FAILURE [None]
